FAERS Safety Report 5416587-6 (Version None)
Quarter: 2007Q3

REPORT INFORMATION
  Report Type: 
  Country: None (occurrence: None)
  Receive Date: 20070814
  Receipt Date: 20070814
  Transmission Date: 20080115
  Serious: No
  Sender: FDA-Public Use
  Company Number: None

PATIENT
  Sex: Female
  Weight: 61.6892 kg

DRUGS (1)
  1. PRAVASTATIN [Suspect]
     Indication: LOW DENSITY LIPOPROTEIN INCREASED
     Dosage: 1 PILL 1X @ DAY PO
     Route: 048
     Dates: start: 20070719, end: 20070729

REACTIONS (6)
  - ARTHRALGIA [None]
  - GAIT DISTURBANCE [None]
  - INFLUENZA [None]
  - PYREXIA [None]
  - RASH GENERALISED [None]
  - RASH PRURITIC [None]
